FAERS Safety Report 5861245-7 (Version None)
Quarter: 2008Q3

REPORT INFORMATION
  Report Type: 
  Country: None (occurrence: None)
  Receive Date: 20080827
  Receipt Date: 20080331
  Transmission Date: 20090109
  Serious: No
  Sender: FDA-Public Use
  Company Number: US-ABBOTT-08P-163-0444550-00

PATIENT
  Sex: Female

DRUGS (4)
  1. COATED PDS [Suspect]
     Indication: BLOOD CHOLESTEROL INCREASED
     Route: 048
     Dates: start: 20080301, end: 20080330
  2. ASTHMA INHALER [Concomitant]
     Indication: ASTHMA
     Route: 055
  3. MOMETASONE FUROATE [Concomitant]
     Indication: SEASONAL ALLERGY
     Route: 055
  4. ACETYLSALICYLIC ACID SRT [Concomitant]
     Indication: DRUG USE FOR UNKNOWN INDICATION
     Route: 048
     Dates: start: 20080301

REACTIONS (1)
  - FLUSHING [None]
